FAERS Safety Report 4401530-9 (Version None)
Quarter: 2004Q3

REPORT INFORMATION
  Report Type: 
  Country: None (occurrence: None)
  Receive Date: 20040716
  Receipt Date: 20040701
  Transmission Date: 20050211
  Serious: Yes (Hospitalization)
  Sender: FDA-Public Use
  Company Number: 2004GB01315

PATIENT
  Age: 62 Year
  Sex: Male

DRUGS (8)
  1. CRESTOR [Suspect]
     Indication: BLOOD CHOLESTEROL INCREASED
     Dosage: 40 MG QD PO
     Route: 048
     Dates: start: 20040224, end: 20040520
  2. EZETIMIBE [Suspect]
     Indication: BLOOD CHOLESTEROL INCREASED
     Dosage: 10 MG QD PO
     Route: 048
     Dates: start: 20040422, end: 20040520
  3. CANDESARTAN [Concomitant]
  4. CELECOXIB [Concomitant]
  5. ALLOPURINOL [Concomitant]
  6. FAMOTIDINE [Concomitant]
  7. ATENOLOL [Concomitant]
  8. CO-PROXAMOL [Concomitant]

REACTIONS (4)
  - DIALYSIS [None]
  - RENAL FAILURE ACUTE [None]
  - RHABDOMYOLYSIS [None]
  - SEPSIS [None]
